FAERS Safety Report 26051166 (Version 1)
Quarter: 2025Q4

REPORT INFORMATION
  Report Type: Spontaneous
  Country: US (occurrence: US)
  Receive Date: 20251117
  Receipt Date: 20251117
  Transmission Date: 20260118
  Serious: No
  Sender: SANOFI AVENTIS
  Company Number: US-SA-2025SA340940

PATIENT
  Sex: Female

DRUGS (15)
  1. DUPIXENT [Suspect]
     Active Substance: DUPILUMAB
     Indication: Dermatitis atopic
     Dosage: 300 MG, QOW
     Route: 058
  2. MIDODRINE HYDROCHLORIDE [Concomitant]
     Active Substance: MIDODRINE HYDROCHLORIDE
  3. LITHIUM CARBONATE [Concomitant]
     Active Substance: LITHIUM CARBONATE
  4. BENZONATATE [Concomitant]
     Active Substance: BENZONATATE
  5. ABILIFY [Concomitant]
     Active Substance: ARIPIPRAZOLE
  6. ZOLOFT [Concomitant]
     Active Substance: SERTRALINE HYDROCHLORIDE
  7. VITAMIN D [Concomitant]
     Active Substance: VITAMIN D NOS
  8. TYLENOL [Concomitant]
     Active Substance: ACETAMINOPHEN
  9. TRIAMCINOLONE [Concomitant]
     Active Substance: TRIAMCINOLONE
  10. TRAMADOL [Concomitant]
     Active Substance: TRAMADOL
  11. Oyster Shell Calci [Concomitant]
  12. NYSTATIN [Concomitant]
     Active Substance: NYSTATIN
  13. NAPROXEN [Concomitant]
     Active Substance: NAPROXEN
  14. VITAMINS NOS [Concomitant]
     Active Substance: VITAMINS
  15. ABILIFY [Concomitant]
     Active Substance: ARIPIPRAZOLE

REACTIONS (3)
  - Skin disorder [Not Recovered/Not Resolved]
  - Condition aggravated [Not Recovered/Not Resolved]
  - Drug ineffective [Not Recovered/Not Resolved]
